FAERS Safety Report 6294947-1 (Version None)
Quarter: 2009Q3

REPORT INFORMATION
  Report Type: 
  Country: None (occurrence: None)
  Receive Date: 20090731
  Receipt Date: 20090731
  Transmission Date: 20100115
  Serious: No
  Sender: FDA-Public Use
  Company Number: None

PATIENT
  Age: 66 Year
  Sex: Male
  Weight: 107.9561 kg

DRUGS (1)
  1. CIPRO [Suspect]
     Indication: URINARY TRACT INFECTION
     Dosage: ONE TABLET 1X PO
     Route: 048
     Dates: start: 20090701, end: 20090710

REACTIONS (4)
  - HERNIA [None]
  - PATELLOFEMORAL PAIN SYNDROME [None]
  - TENDON RUPTURE [None]
  - TENDONITIS [None]
